FAERS Safety Report 18216870 (Version 1)
Quarter: 2020Q3

REPORT INFORMATION
  Report Type: Spontaneous
  Country: CA (occurrence: CA)
  Receive Date: 20200901
  Receipt Date: 20200901
  Transmission Date: 20201103
  Serious: Yes (Other)
  Sender: FDA-Public Use
  Company Number: CA-ACCORD-198288

PATIENT
  Age: 72 Year
  Sex: Male

DRUGS (3)
  1. ETOPOSIDE. [Suspect]
     Active Substance: ETOPOSIDE
     Indication: SMALL CELL LUNG CANCER METASTATIC
  2. CISPLATIN. [Suspect]
     Active Substance: CISPLATIN
     Indication: SMALL CELL LUNG CANCER METASTATIC
     Dosage: SOLUTION INTRAVENOUS
  3. TECENTRIQ [Suspect]
     Active Substance: ATEZOLIZUMAB
     Indication: SMALL CELL LUNG CANCER METASTATIC
     Dosage: 1 EVERY 3 WEEKS

REACTIONS (7)
  - Cerebral disorder [Unknown]
  - Weight bearing difficulty [Unknown]
  - Asthenia [Unknown]
  - Heart rate irregular [Unknown]
  - Gait disturbance [Unknown]
  - Blood pressure abnormal [Unknown]
  - Hallucination [Unknown]
